FAERS Safety Report 10622001 (Version 1)
Quarter: 2014Q4

REPORT INFORMATION
  Report Type: Spontaneous
  Country: US (occurrence: None)
  Receive Date: 20141201
  Receipt Date: 20141201
  Transmission Date: 20150529
  Serious: Yes (Hospitalization)
  Sender: FDA-Public Use
  Company Number: None

PATIENT
  Age: 3 Year
  Sex: Male
  Weight: 14.7 kg

DRUGS (6)
  1. PREDNISONE. [Suspect]
     Active Substance: PREDNISONE
     Dates: end: 20141101
  2. METHOTREXATE [Suspect]
     Active Substance: METHOTREXATE
     Dates: end: 20141028
  3. MERCAPTOPURINE. [Suspect]
     Active Substance: MERCAPTOPURINE
     Dates: end: 20141028
  4. CYTARABINE. [Suspect]
     Active Substance: CYTARABINE
     Dates: end: 20140902
  5. HYDROCORTISONE. [Suspect]
     Active Substance: HYDROCORTISONE
     Dates: end: 20140902
  6. VINCRISTINE [Suspect]
     Active Substance: VINCRISTINE
     Dates: end: 20141028

REACTIONS (11)
  - Thrombocytopenia [None]
  - Hepatomegaly [None]
  - Otorrhoea [None]
  - Neutropenia [None]
  - Anaemia [None]
  - Pyrexia [None]
  - Otitis media [None]
  - Ascites [None]
  - Abdominal distension [None]
  - Chills [None]
  - Cough [None]

NARRATIVE: CASE EVENT DATE: 20141111
